FAERS Safety Report 8575957-8 (Version None)
Quarter: 2012Q3

REPORT INFORMATION
  Report Type: 
  Country: None (occurrence: None)
  Receive Date: 20120807
  Receipt Date: 20120727
  Transmission Date: 20120928
  Serious: Yes (Hospitalization)
  Sender: FDA-Public Use
  Company Number: US-BAYER-2011-101385

PATIENT
  Age: 31 Year
  Sex: Female
  Weight: 78.005 kg

DRUGS (11)
  1. ZOFRAN [Concomitant]
     Dosage: 4 MG, UNK
     Route: 042
     Dates: start: 20110228
  2. LEVOTHYROXINE SODIUM [Concomitant]
     Dosage: 150 MCG, UNK
     Route: 048
     Dates: start: 20110228, end: 20110324
  3. RANITIDINE [Concomitant]
     Dosage: 150 MG, UNK
     Route: 048
     Dates: start: 20110228
  4. FLEXERIL [Concomitant]
     Dosage: 10 MG, UNK
     Route: 048
     Dates: start: 20110228, end: 20110318
  5. LEXAPRO [Concomitant]
     Dosage: 10 MG, UNK
     Route: 048
     Dates: start: 20110228, end: 20110324
  6. OXYCODONE HCL AND ACETAMINOPHEN [Concomitant]
     Dosage: 5-325 MG, UNK
     Route: 048
     Dates: start: 20110310
  7. YAZ [Suspect]
     Dosage: UNK
     Dates: start: 20060101, end: 20080101
  8. ONE-A-DAY [Concomitant]
     Dosage: UNK UNK, QD
  9. PHENERGAN HCL [Concomitant]
     Dosage: 25 MG, UNK
     Route: 048
     Dates: start: 20110228
  10. PEPCID [Concomitant]
     Dosage: 20 MG, UNK
     Route: 042
     Dates: start: 20110228
  11. VICODIN [Concomitant]
     Dosage: 5-500MG, UNK
     Route: 048
     Dates: start: 20110228, end: 20110310

REACTIONS (9)
  - GALLBLADDER DISORDER [None]
  - INJURY [None]
  - ANHEDONIA [None]
  - GENERAL PHYSICAL HEALTH DETERIORATION [None]
  - EMOTIONAL DISTRESS [None]
  - DEPRESSION [None]
  - ANXIETY [None]
  - PAIN [None]
  - CHOLECYSTITIS CHRONIC [None]
